FAERS Safety Report 24990646 (Version 1)
Quarter: 2025Q1

REPORT INFORMATION
  Report Type: Report from Study
  Country: US (occurrence: US)
  Receive Date: 20250220
  Receipt Date: 20250220
  Transmission Date: 20250409
  Serious: Yes (Hospitalization, Other)
  Sender: GILEAD
  Company Number: US-GILEAD-2025-0704406

PATIENT
  Age: 47 Year
  Sex: Male

DRUGS (1)
  1. AZTREONAM LYSINE [Suspect]
     Active Substance: AZTREONAM LYSINE
     Indication: Cystic fibrosis
     Dosage: INHALE 1 VIAL (75 MG) VIA ALTERA NEBULIZER THREE TIMES DAILY, FOR 28 DAYS ON AND 28 DAYS OFF
     Route: 055

REACTIONS (1)
  - Cystic fibrosis [Unknown]

NARRATIVE: CASE EVENT DATE: 20250120
